FAERS Safety Report 4305382-7 (Version None)
Quarter: 2004Q1

REPORT INFORMATION
  Report Type: 
  Country: None (occurrence: None)
  Receive Date: 20040226
  Receipt Date: 20030916
  Transmission Date: 20041129
  Serious: No
  Sender: FDA-Public Use
  Company Number: US-BRISTOL-MYERS SQUIBB COMPANY-12386413

PATIENT
  Sex: Female

DRUGS (1)
  1. TAXOL [Suspect]
     Indication: CARCINOMA
     Dosage: THERAPY COMPLETED TWO YEARS PRIOR TO CONTACT WITH BMS

REACTIONS (2)
  - PAIN [None]
  - PARAESTHESIA [None]
